FAERS Safety Report 25994913 (Version 1)
Quarter: 2025Q4

REPORT INFORMATION
  Report Type: Report from Study
  Country: US (occurrence: US)
  Receive Date: 20251104
  Receipt Date: 20251104
  Transmission Date: 20260118
  Serious: Yes (Disabling)
  Sender: ABBVIE
  Company Number: US-ABBVIE-6524982

PATIENT
  Sex: Female

DRUGS (1)
  1. SKYRIZI [Suspect]
     Active Substance: RISANKIZUMAB-RZAA
     Indication: Product used for unknown indication
     Route: 058
     Dates: start: 20240101

REACTIONS (2)
  - Pain in extremity [Not Recovered/Not Resolved]
  - Arthritis [Unknown]
